FAERS Safety Report 7433743-6 (Version None)
Quarter: 2011Q2

REPORT INFORMATION
  Report Type: 
  Country: None (occurrence: None)
  Receive Date: 20110424
  Receipt Date: 20110419
  Transmission Date: 20111010
  Serious: No
  Sender: FDA-Public Use
  Company Number: US-B.I. PHARMACEUTICALS,INC./RIDGEFIELD-2011-BP-03825BP

PATIENT
  Sex: Female

DRUGS (10)
  1. TOPROL-XL [Concomitant]
  2. PRADAXA [Suspect]
     Indication: ATRIAL FIBRILLATION
     Dosage: 300 MG
     Route: 048
     Dates: start: 20110208, end: 20110213
  3. ASPIRIN [Concomitant]
  4. FISH OIL [Concomitant]
  5. FLAX SEED [Concomitant]
  6. ACETAMINOPHEN [Concomitant]
  7. SPIRONOLACT [Concomitant]
  8. REQUIP [Concomitant]
  9. CALTRATE 600 + D [Concomitant]
  10. LOSARTAN POTASSIUM [Concomitant]

REACTIONS (4)
  - DIZZINESS [None]
  - HAEMATOCHEZIA [None]
  - ASTHENIA [None]
  - ABDOMINAL DISCOMFORT [None]
